FAERS Safety Report 7787706-1 (Version None)
Quarter: 2011Q3

REPORT INFORMATION
  Report Type: 
  Country: None (occurrence: None)
  Receive Date: 20110929
  Receipt Date: 20110923
  Transmission Date: 20111222
  Serious: Yes (Other)
  Sender: FDA-Public Use
  Company Number: US-PFIZER INC-2007025970

PATIENT
  Sex: Female
  Weight: 51 kg

DRUGS (13)
  1. LORTAB [Concomitant]
     Dosage: UNK
     Route: 048
  2. OXYMORPHONE HYDROCHLORIDE [Concomitant]
     Indication: PAIN
     Dosage: UNK
     Route: 048
  3. PREMARIN [Concomitant]
  4. CHANTIX [Suspect]
     Dosage: 1 MG, 2X/DAY
     Route: 048
     Dates: start: 20070321
  5. CHANTIX [Suspect]
     Indication: SMOKING CESSATION THERAPY
     Dosage: 0.5 MG, 1X/DAY
     Dates: start: 20070314, end: 20070316
  6. AMLODIPINE BESILATE [Concomitant]
     Indication: HYPERTENSION
     Dosage: 5 MG, DAILY
     Route: 048
  7. NEXIUM [Concomitant]
     Indication: GASTROOESOPHAGEAL REFLUX DISEASE
     Dosage: 40 MG, UNK
     Route: 048
  8. CADUET [Concomitant]
  9. TRAZODONE HYDROCHLORIDE [Concomitant]
     Indication: SLEEP DISORDER
  10. CHANTIX [Suspect]
     Dosage: 0.5 MG, 1X/DAY
     Route: 048
  11. CHANTIX [Suspect]
     Dosage: 0.5 MG, 2X/DAY
     Route: 048
     Dates: start: 20070317, end: 20070320
  12. XANAX [Concomitant]
     Indication: ANXIETY
     Dosage: 0.5 MG, AS NEEDED UP TO 4X DAILY
     Route: 048
  13. CRESTOR [Concomitant]
     Indication: BLOOD CHOLESTEROL INCREASED
     Dosage: 10 MG, DAILY
     Route: 048

REACTIONS (13)
  - EMPHYSEMA [None]
  - CONSTIPATION [None]
  - FEELING ABNORMAL [None]
  - PERSONALITY CHANGE [None]
  - GASTROOESOPHAGEAL REFLUX DISEASE [None]
  - ABNORMAL DREAMS [None]
  - MOOD ALTERED [None]
  - CHRONIC OBSTRUCTIVE PULMONARY DISEASE [None]
  - SLEEP TALKING [None]
  - FLATULENCE [None]
  - BRONCHITIS CHRONIC [None]
  - BLOOD POTASSIUM DECREASED [None]
  - BLOOD CALCIUM INCREASED [None]
